APPROVED DRUG PRODUCT: XERESE
Active Ingredient: ACYCLOVIR; HYDROCORTISONE
Strength: 5%;1%
Dosage Form/Route: CREAM;TOPICAL
Application: N022436 | Product #001
Applicant: BAUSCH HEALTH US LLC
Approved: Jul 31, 2009 | RLD: Yes | RS: Yes | Type: RX